FAERS Safety Report 22250243 (Version 5)
Quarter: 2024Q1

REPORT INFORMATION
  Report Type: Report from Study
  Country: IN (occurrence: IN)
  Receive Date: 20230425
  Receipt Date: 20240304
  Transmission Date: 20240410
  Serious: Yes (Other)
  Sender: FDA-Public Use
  Company Number: IN-002147023-NVSC2021IN241439

PATIENT

DRUGS (8)
  1. RUXOLITINIB [Suspect]
     Active Substance: RUXOLITINIB
     Indication: Myelofibrosis
     Dosage: 5 MG, BID
     Route: 065
     Dates: start: 20190521, end: 20211017
  2. RUXOLITINIB [Suspect]
     Active Substance: RUXOLITINIB
     Dosage: 15 MG (10MG-0-5MG)
     Route: 065
     Dates: start: 20211018
  3. RUXOLITINIB [Suspect]
     Active Substance: RUXOLITINIB
     Dosage: 15 MG, QD
     Route: 048
     Dates: start: 20220303
  4. RUXOLITINIB [Suspect]
     Active Substance: RUXOLITINIB
     Dosage: 15 MG, QD
     Route: 065
     Dates: start: 20220530
  5. RUXOLITINIB [Suspect]
     Active Substance: RUXOLITINIB
     Dosage: 15 MG, QD
     Route: 065
     Dates: start: 20220818
  6. RUXOLITINIB [Suspect]
     Active Substance: RUXOLITINIB
     Dosage: 10 MG, BID
     Route: 048
     Dates: start: 20230410
  7. RUXOLITINIB [Suspect]
     Active Substance: RUXOLITINIB
     Dosage: 20 MG, OTHER (1/2 - 0- 1/2)
     Route: 048
     Dates: start: 20230622
  8. RUXOLITINIB [Suspect]
     Active Substance: RUXOLITINIB
     Dosage: 10 MG, BID (INCREASED DOSE OF JAKAVI FROM 15 MG TO 20 MG)
     Route: 048

REACTIONS (15)
  - Wrong technique in product usage process [Unknown]
  - Dengue fever [Recovered/Resolved]
  - Contusion [Unknown]
  - Fatigue [Unknown]
  - Headache [Unknown]
  - Brain fog [Unknown]
  - Pruritus [Unknown]
  - Haemoglobin decreased [Unknown]
  - Platelet count decreased [Unknown]
  - Gait disturbance [Unknown]
  - Inappropriate schedule of product administration [Unknown]
  - Rash macular [Unknown]
  - Transient ischaemic attack [Unknown]
  - Product use issue [Unknown]
  - Vertigo [Unknown]

NARRATIVE: CASE EVENT DATE: 20190101
